FAERS Safety Report 24588213 (Version 1)
Quarter: 2024Q4

REPORT INFORMATION
  Report Type: Spontaneous
  Country: US (occurrence: None)
  Receive Date: 20241106
  Receipt Date: 20241106
  Transmission Date: 20250114
  Serious: Yes (Hospitalization)
  Sender: Public
  Company Number: None

PATIENT
  Age: 77 Year
  Sex: Female

DRUGS (1)
  1. MYCOPHENOLIC ACID [Suspect]
     Active Substance: MYCOPHENOLIC ACID
     Indication: Autoimmune hepatitis
     Dosage: OTHER QUANTITY : 500MGAND750MG;?OTHER FREQUENCY : QAM(500)ANDQPM(750MG);?

REACTIONS (4)
  - Oedema peripheral [None]
  - Dry skin [None]
  - Palpitations [None]
  - Skin infection [None]
